FAERS Safety Report 9678422 (Version 1)
Quarter: 2013Q4

REPORT INFORMATION
  Report Type: Spontaneous
  Country: FR (occurrence: None)
  Receive Date: 20131106
  Receipt Date: 20131106
  Transmission Date: 20140711
  Serious: Yes (Hospitalization)
  Sender: FDA-Public Use
  Company Number: 2013P1020751

PATIENT
  Age: 39 Year
  Sex: Female

DRUGS (4)
  1. PLAQUENIL [Suspect]
     Indication: SJOGREN^S SYNDROME
     Route: 048
     Dates: start: 20130911, end: 20130926
  2. FUNGIZONE [Suspect]
     Route: 048
     Dates: start: 20130906, end: 20130926
  3. ARTISIAL [Suspect]
     Dosage: PRN, PO
     Dates: start: 20130906, end: 20130926
  4. CORTICOSTEROIDS [Concomitant]

REACTIONS (1)
  - Acute generalised exanthematous pustulosis [None]
